FAERS Safety Report 25949221 (Version 1)
Quarter: 2025Q4

REPORT INFORMATION
  Report Type: Spontaneous
  Country: US (occurrence: US)
  Receive Date: 20251022
  Receipt Date: 20251022
  Transmission Date: 20260118
  Serious: Yes (Hospitalization)
  Sender: MYLAN
  Company Number: US-MYLANLABS-2025M1089024

PATIENT
  Age: 78 Year
  Sex: Male

DRUGS (8)
  1. PREDNISONE [Suspect]
     Active Substance: PREDNISONE
     Indication: Eosinophilic fasciitis
     Dosage: 60 MILLIGRAM, QD (GRADUAL TAPER)
  2. PREDNISONE [Suspect]
     Active Substance: PREDNISONE
     Dosage: 60 MILLIGRAM, QD (GRADUAL TAPER)
     Route: 065
  3. PREDNISONE [Suspect]
     Active Substance: PREDNISONE
     Dosage: 60 MILLIGRAM, QD (GRADUAL TAPER)
     Route: 065
  4. PREDNISONE [Suspect]
     Active Substance: PREDNISONE
     Dosage: 60 MILLIGRAM, QD (GRADUAL TAPER)
  5. MYCOPHENOLATE MOFETIL [Suspect]
     Active Substance: MYCOPHENOLATE MOFETIL
     Indication: Eosinophilic fasciitis
     Dosage: UNK, BID (TITRATED TO 1.5 GRAMS TWICE DAILY)
  6. MYCOPHENOLATE MOFETIL [Suspect]
     Active Substance: MYCOPHENOLATE MOFETIL
     Dosage: UNK, BID (TITRATED TO 1.5 GRAMS TWICE DAILY)
     Route: 065
  7. MYCOPHENOLATE MOFETIL [Suspect]
     Active Substance: MYCOPHENOLATE MOFETIL
     Dosage: UNK, BID (TITRATED TO 1.5 GRAMS TWICE DAILY)
     Route: 065
  8. MYCOPHENOLATE MOFETIL [Suspect]
     Active Substance: MYCOPHENOLATE MOFETIL
     Dosage: UNK, BID (TITRATED TO 1.5 GRAMS TWICE DAILY)

REACTIONS (2)
  - Drug ineffective [Unknown]
  - Product use issue [Unknown]
